FAERS Safety Report 7572694-3 (Version None)
Quarter: 2011Q2

REPORT INFORMATION
  Report Type: 
  Country: None (occurrence: None)
  Receive Date: 20110620
  Receipt Date: 20110603
  Transmission Date: 20111010
  Serious: Yes (Hospitalization)
  Sender: FDA-Public Use
  Company Number: 2011MA006816

PATIENT
  Age: 78 Year
  Sex: Female

DRUGS (1)
  1. PHENYTOIN [Suspect]

REACTIONS (12)
  - FACE OEDEMA [None]
  - PYREXIA [None]
  - HEPATITIS [None]
  - RENAL IMPAIRMENT [None]
  - THYROIDITIS [None]
  - DRUG RASH WITH EOSINOPHILIA AND SYSTEMIC SYMPTOMS [None]
  - BLOOD DISORDER [None]
  - THYROID FUNCTION TEST ABNORMAL [None]
  - HAEMODIALYSIS [None]
  - PERIVASCULAR DERMATITIS [None]
  - MYOCARDITIS [None]
  - CARDIOMYOPATHY [None]
